FAERS Safety Report 18958755 (Version 2)
Quarter: 2021Q2

REPORT INFORMATION
  Report Type: Report from Study
  Country: US (occurrence: US)
  Receive Date: 20210302
  Receipt Date: 20210407
  Transmission Date: 20210717
  Serious: Yes (Hospitalization)
  Sender: FDA-Public Use
  Company Number: US-JNJFOC-20210231680

PATIENT
  Age: 66 Year
  Sex: Female

DRUGS (2)
  1. ASPRIN [Concomitant]
     Active Substance: ASPIRIN
  2. MACITENTAN [Suspect]
     Active Substance: MACITENTAN
     Indication: PULMONARY ARTERIAL HYPERTENSION
     Route: 048

REACTIONS (7)
  - Haemoglobin decreased [Unknown]
  - Faeces discoloured [Recovered/Resolved]
  - Fluid retention [Recovering/Resolving]
  - Oedema [Unknown]
  - Asthenia [Unknown]
  - Dyspnoea [Unknown]
  - Cardiac disorder [Unknown]

NARRATIVE: CASE EVENT DATE: 20210214
